FAERS Safety Report 14908180 (Version 1)
Quarter: 2018Q2

REPORT INFORMATION
  Report Type: Spontaneous
  Country: US (occurrence: US)
  Receive Date: 20180517
  Receipt Date: 20180517
  Transmission Date: 20180711
  Serious: No
  Sender: FDA-Public Use
  Company Number: US-BAYER-2018-087649

PATIENT
  Age: 46 Year
  Sex: Female
  Weight: 67.98 kg

DRUGS (1)
  1. MIRALAX [Suspect]
     Active Substance: POLYETHYLENE GLYCOL 3350
     Indication: COLONOSCOPY
     Route: 048
     Dates: start: 2017

REACTIONS (6)
  - Off label use [Unknown]
  - Expired product administered [Unknown]
  - Product use in unapproved indication [Unknown]
  - Product taste abnormal [None]
  - Drug administration error [Unknown]
  - Poor quality drug administered [None]

NARRATIVE: CASE EVENT DATE: 20170506
